FAERS Safety Report 6289240-7 (Version None)
Quarter: 2009Q3

REPORT INFORMATION
  Report Type: 
  Country: None (occurrence: None)
  Receive Date: 20090729
  Receipt Date: 20071008
  Transmission Date: 20100115
  Serious: Yes (Other)
  Sender: FDA-Public Use
  Company Number: US-ASTRAZENECA-2006UW11853

PATIENT
  Age: 16932 Day
  Sex: Male
  Weight: 136.1 kg

DRUGS (6)
  1. SEROQUEL [Suspect]
     Indication: BIPOLAR DISORDER
     Route: 048
     Dates: start: 20041206
  2. SEROQUEL [Suspect]
     Indication: BIPOLAR I DISORDER
     Route: 048
     Dates: start: 20041206
  3. SEROQUEL [Suspect]
     Indication: INSOMNIA
     Route: 048
     Dates: start: 20041206
  4. ZYPREXA [Suspect]
     Dates: start: 20010101, end: 20060801
  5. VIOXX [Concomitant]
     Route: 048
     Dates: start: 20020305
  6. CYMBALTA [Concomitant]
     Dosage: 30-60 MG
     Dates: start: 20041206

REACTIONS (5)
  - DIABETES MELLITUS [None]
  - DIABETIC FOOT [None]
  - HYPERGLYCAEMIA [None]
  - NEUROPATHY PERIPHERAL [None]
  - TYPE 2 DIABETES MELLITUS [None]
